FAERS Safety Report 4760387-7 (Version None)
Quarter: 2005Q3

REPORT INFORMATION
  Report Type: 
  Country: None (occurrence: None)
  Receive Date: 20050902
  Receipt Date: 20041203
  Transmission Date: 20060218
  Serious: Yes (Other)
  Sender: FDA-Public Use
  Company Number: GB-GLAXOSMITHKLINE-B0360457A

PATIENT
  Sex: Female

DRUGS (4)
  1. PAROXETINE HYDROCHLORIDE [Suspect]
     Route: 048
     Dates: end: 20031029
  2. PAROXETINE HYDROCHLORIDE [Suspect]
     Route: 048
     Dates: start: 20030101, end: 20031029
  3. DIAZEPAM [Concomitant]
     Route: 065
  4. TRAZODONE [Concomitant]
     Route: 065

REACTIONS (30)
  - AFFECTIVE DISORDER [None]
  - AGITATION [None]
  - ANGER [None]
  - ANHEDONIA [None]
  - ANXIETY [None]
  - APATHY [None]
  - ASTHENIA [None]
  - DECREASED APPETITE [None]
  - DEPERSONALISATION [None]
  - DEPRESSED MOOD [None]
  - DISSOCIATION [None]
  - DISTURBANCE IN ATTENTION [None]
  - DRUG WITHDRAWAL SYNDROME [None]
  - DYSPHORIA [None]
  - EMOTIONAL DISTRESS [None]
  - FATIGUE [None]
  - FEELING GUILTY [None]
  - FEELING OF DESPAIR [None]
  - FEELINGS OF WORTHLESSNESS [None]
  - HALLUCINATION, AUDITORY [None]
  - HALLUCINATION, VISUAL [None]
  - HOMICIDAL IDEATION [None]
  - HOSTILITY [None]
  - INITIAL INSOMNIA [None]
  - IRRITABILITY [None]
  - SELF ESTEEM DECREASED [None]
  - SELF-INJURIOUS IDEATION [None]
  - SLEEP DISORDER [None]
  - SUICIDAL IDEATION [None]
  - TENSION [None]
